FAERS Safety Report 13328725 (Version 1)
Quarter: 2017Q1

REPORT INFORMATION
  Report Type: Spontaneous
  Country: US (occurrence: US)
  Receive Date: 20170310
  Receipt Date: 20170310
  Transmission Date: 20170428
  Serious: Yes (Other)
  Sender: FDA-Public Use
  Company Number: None

PATIENT
  Age: 52 Year
  Sex: Female
  Weight: 60.75 kg

DRUGS (13)
  1. BENAZEPRIL [Concomitant]
     Active Substance: BENAZEPRIL HYDROCHLORIDE
  2. TRAZODONE [Concomitant]
     Active Substance: TRAZODONE HYDROCHLORIDE
  3. WOMEN^S MULTIVITAMIN [Concomitant]
  4. DULOXETINE DR [Suspect]
     Active Substance: DULOXETINE
     Indication: DEPRESSION
     Dosage: ?          QUANTITY:1 CAPSULE(S);?
     Route: 048
     Dates: start: 20140102, end: 20170306
  5. BUPROPRION [Concomitant]
     Active Substance: BUPROPION
  6. TYLENOL [Concomitant]
     Active Substance: ACETAMINOPHEN
  7. VENTOLIN [Concomitant]
     Active Substance: ALBUTEROL SULFATE
  8. VITAMIN C [Concomitant]
     Active Substance: ASCORBIC ACID
  9. RHODIOLA [Concomitant]
     Active Substance: HERBALS
  10. CYMBALTA [Concomitant]
     Active Substance: DULOXETINE HYDROCHLORIDE
  11. FISH OIL [Concomitant]
     Active Substance: FISH OIL
  12. ADVAIR DISKUS [Concomitant]
     Active Substance: FLUTICASONE PROPIONATE\SALMETEROL XINAFOATE
  13. GNC HAIR, SKIN AND NAIL FORMULA [Concomitant]

REACTIONS (19)
  - Night sweats [None]
  - Nausea [None]
  - Irritability [None]
  - Pain [None]
  - Headache [None]
  - Bradyphrenia [None]
  - Depressed level of consciousness [None]
  - Emotional disorder [None]
  - Libido decreased [None]
  - Decreased appetite [None]
  - Tinnitus [None]
  - Withdrawal syndrome [None]
  - Insomnia [None]
  - Anorgasmia [None]
  - Paraesthesia [None]
  - Nightmare [None]
  - Muscle spasms [None]
  - Chills [None]
  - Lethargy [None]

NARRATIVE: CASE EVENT DATE: 20170310
